FAERS Safety Report 9430452 (Version 1)
Quarter: 2013Q3

REPORT INFORMATION
  Report Type: Spontaneous
  Country: US (occurrence: None)
  Receive Date: 20130726
  Receipt Date: 20130726
  Transmission Date: 20140515
  Serious: Yes (Hospitalization)
  Sender: FDA-Public Use
  Company Number: PHEN20130017

PATIENT
  Age: 24 Year
  Sex: Male

DRUGS (1)
  1. PHENTERMINE HCL [Suspect]
     Dosage: 3 DOSES LAST WEEK, 3 IN 1 WK
     Route: 048

REACTIONS (2)
  - Pneumomediastinum [None]
  - Self-medication [None]
